FAERS Safety Report 7277118-1 (Version None)
Quarter: 2011Q1

REPORT INFORMATION
  Report Type: 
  Country: None (occurrence: None)
  Receive Date: 20110202
  Receipt Date: 20110202
  Transmission Date: 20110831
  Serious: Yes (Hospitalization)
  Sender: FDA-Public Use
  Company Number: None

PATIENT
  Age: 77 Year
  Sex: Female
  Weight: 81.1939 kg

DRUGS (1)
  1. RECLAST [Suspect]
     Indication: OSTEOPENIA
     Dosage: 5MG 20MIN DRIP
     Dates: start: 20101223

REACTIONS (5)
  - FATIGUE [None]
  - DIZZINESS [None]
  - NAUSEA [None]
  - MALAISE [None]
  - BONE PAIN [None]
